FAERS Safety Report 12377309 (Version 1)
Quarter: 2016Q2

REPORT INFORMATION
  Report Type: Report from Study
  Country: US (occurrence: US)
  Receive Date: 20160517
  Receipt Date: 20160517
  Transmission Date: 20160815
  Serious: No
  Sender: FDA-Public Use
  Company Number: US-MALLINCKRODT-T201504758

PATIENT
  Age: 36 Year
  Sex: Male

DRUGS (1)
  1. REPOSITORY CORTICOTROPIN INJECTION [Suspect]
     Active Substance: CORTICOTROPIN
     Indication: IGA NEPHROPATHY
     Dosage: 80 UNITS TWICE WEEKLY
     Route: 058
     Dates: start: 20150918

REACTIONS (6)
  - Tooth fracture [Recovered/Resolved]
  - Fatigue [Unknown]
  - Depressed mood [Unknown]
  - Accident at work [Recovered/Resolved]
  - Drug dose omission [Unknown]
  - Injection site induration [Recovered/Resolved]

NARRATIVE: CASE EVENT DATE: 201511
